FAERS Safety Report 4314159-8 (Version None)
Quarter: 2004Q1

REPORT INFORMATION
  Report Type: 
  Country: None (occurrence: None)
  Receive Date: 20040308
  Receipt Date: 20040308
  Transmission Date: 20041129
  Serious: Yes (Hospitalization)
  Sender: FDA-Public Use
  Company Number: None

PATIENT
  Age: 29 Year
  Sex: Male

DRUGS (5)
  1. VIRAMUNE [Suspect]
     Indication: ACQUIRED IMMUNODEFICIENCY SYNDROME
     Dosage: 200MG PO DAILY X 14 DAYS THEN 200MG PO BID
     Route: 048
     Dates: start: 20040115, end: 20040206
  2. VIRAMUNE [Suspect]
     Indication: HIV INFECTION
     Dosage: 200MG PO DAILY X 14 DAYS THEN 200MG PO BID
     Route: 048
     Dates: start: 20040115, end: 20040206
  3. TRIZIVIR [Concomitant]
  4. ACYCLOVIR [Concomitant]
  5. PROZAC [Concomitant]

REACTIONS (8)
  - CHROMATURIA [None]
  - CONTUSION [None]
  - DIZZINESS [None]
  - JAUNDICE [None]
  - LIVER FUNCTION TEST ABNORMAL [None]
  - NAUSEA [None]
  - PYREXIA [None]
  - VOMITING [None]
